FAERS Safety Report 5616229-0 (Version None)
Quarter: 2008Q1

REPORT INFORMATION
  Report Type: 
  Country: None (occurrence: None)
  Receive Date: 20080206
  Receipt Date: 20080125
  Transmission Date: 20080703
  Serious: Yes (Hospitalization)
  Sender: FDA-Public Use
  Company Number: AT-GILEAD-2008-0014977

PATIENT
  Sex: Male

DRUGS (3)
  1. TRUVADA [Suspect]
     Indication: HIV INFECTION
     Route: 048
     Dates: start: 20071001
  2. FOSAMPRENAVIR [Concomitant]
     Indication: HIV INFECTION
     Route: 048
     Dates: start: 20071001
  3. RITONAVIR [Concomitant]
     Route: 048

REACTIONS (1)
  - VENOUS THROMBOSIS LIMB [None]
